FAERS Safety Report 21203605 (Version 1)
Quarter: 2022Q3

REPORT INFORMATION
  Report Type: Spontaneous
  Country: US (occurrence: US)
  Receive Date: 20220811
  Receipt Date: 20220811
  Transmission Date: 20221026
  Serious: Yes (Hospitalization, Other)
  Sender: FDA-Public Use
  Company Number: US-SCALL-2022-US-019181

PATIENT
  Age: 89 Year
  Sex: Male

DRUGS (6)
  1. DUTASTERIDE [Suspect]
     Active Substance: DUTASTERIDE
     Indication: Product used for unknown indication
     Dosage: 0.4 MG
     Route: 065
  2. NEXIUM [Suspect]
     Active Substance: ESOMEPRAZOLE MAGNESIUM
     Route: 065
  3. ARICEPT [Suspect]
     Active Substance: DONEPEZIL HYDROCHLORIDE
     Route: 065
  4. SERTRALINE [Suspect]
     Active Substance: SERTRALINE HYDROCHLORIDE
     Route: 065
  5. MEMANTINE [Suspect]
     Active Substance: MEMANTINE
     Route: 065
  6. ROSUVASTATIN [Suspect]
     Active Substance: ROSUVASTATIN
     Route: 065

REACTIONS (5)
  - Haemorrhoids [Recovering/Resolving]
  - Frequent bowel movements [Unknown]
  - Asthenia [Unknown]
  - Faecaloma [Unknown]
  - Malnutrition [Unknown]

NARRATIVE: CASE EVENT DATE: 20220729
